FAERS Safety Report 5615854-0 (Version None)
Quarter: 2008Q1

REPORT INFORMATION
  Report Type: 
  Country: None (occurrence: None)
  Receive Date: 20080206
  Receipt Date: 20080125
  Transmission Date: 20080703
  Serious: Yes (Hospitalization)
  Sender: FDA-Public Use
  Company Number: FR-ELI_LILLY_AND_COMPANY-FR200801005048

PATIENT
  Age: 93 Year
  Sex: Female

DRUGS (5)
  1. PROZAC [Suspect]
     Indication: DEPRESSION
     Dosage: UNK, UNKNOWN
     Route: 048
     Dates: start: 20070313, end: 20071016
  2. STILNOX /FRA/ [Interacting]
     Dosage: 10 MG, UNKNOWN
     Route: 048
     Dates: start: 20070109
  3. XANAX [Concomitant]
     Dosage: 0.25 MG, UNKNOWN
     Route: 048
     Dates: start: 20070903
  4. ACETAMINOPHEN [Concomitant]
     Dosage: 500 MG, UNKNOWN
     Route: 048
     Dates: start: 20070330
  5. MOTILIUM [Concomitant]
     Dosage: 10 MG, UNKNOWN
     Route: 048
     Dates: start: 20070915, end: 20070930

REACTIONS (1)
  - NEUTROPENIA [None]
